FAERS Safety Report 14786485 (Version 2)
Quarter: 2018Q2

REPORT INFORMATION
  Report Type: Spontaneous
  Country: US (occurrence: US)
  Receive Date: 20180420
  Receipt Date: 20180503
  Transmission Date: 20180711
  Serious: Yes (Other)
  Sender: FDA-Public Use
  Company Number: US-PFIZER INC-2018159089

PATIENT
  Age: 63 Year
  Sex: Female
  Weight: 108.86 kg

DRUGS (1)
  1. DETROL LA [Suspect]
     Active Substance: TOLTERODINE TARTRATE
     Indication: URINARY INCONTINENCE
     Dosage: 4 MG, 1X/DAY
     Route: 048
     Dates: start: 20180307, end: 20180310

REACTIONS (5)
  - Urinary tract infection [Recovered/Resolved]
  - Speech disorder [Unknown]
  - Tongue disorder [Unknown]
  - Urinary bladder haemorrhage [Unknown]
  - Dry mouth [Recovered/Resolved]

NARRATIVE: CASE EVENT DATE: 201803
